FAERS Safety Report 22962044 (Version 2)
Quarter: 2023Q4

REPORT INFORMATION
  Report Type: Spontaneous
  Country: US (occurrence: US)
  Receive Date: 20230920
  Receipt Date: 20231111
  Transmission Date: 20240109
  Serious: Yes (Other)
  Sender: FDA-Public Use
  Company Number: US-TEVA-2023-US-2927911

PATIENT
  Sex: Male

DRUGS (1)
  1. AJOVY [Suspect]
     Active Substance: FREMANEZUMAB-VFRM
     Indication: Product used for unknown indication
     Dosage: STRENGTH: 225 MG / 1.5 ML
     Route: 065

REACTIONS (3)
  - Craniocerebral injury [Unknown]
  - Device malfunction [Unknown]
  - Device delivery system issue [Unknown]
